FAERS Safety Report 6127290-1 (Version None)
Quarter: 2009Q1

REPORT INFORMATION
  Report Type: 
  Country: None (occurrence: None)
  Receive Date: 20090319
  Receipt Date: 20090310
  Transmission Date: 20090719
  Serious: Yes (Other)
  Sender: FDA-Public Use
  Company Number: 238004J08USA

PATIENT
  Age: 58 Year
  Sex: Male
  Weight: 84 kg

DRUGS (5)
  1. REBIF [Suspect]
     Indication: MULTIPLE SCLEROSIS
     Dosage: 44 MCG, 3 IN 1 WEEKS, SUBCUTANEOUS
     Route: 058
     Dates: start: 20060313
  2. VITAMIN SUPPLEMENTS (VITAMINS) [Concomitant]
  3. GINKOBILOBA (GINKGO BILOBA) [Concomitant]
  4. VITAMIN B12 [Concomitant]
  5. COQ10 (UBIDECARENONE) [Concomitant]

REACTIONS (1)
  - AUTOIMMUNE THYROIDITIS [None]
